FAERS Safety Report 17003998 (Version 1)
Quarter: 2019Q4

REPORT INFORMATION
  Report Type: Spontaneous
  Country: US (occurrence: US)
  Receive Date: 20191107
  Receipt Date: 20191107
  Transmission Date: 20200122
  Serious: Yes (Other)
  Sender: FDA-Public Use
  Company Number: US-ENDO PHARMACEUTICALS INC-2019-109138

PATIENT
  Age: 33 Year
  Sex: Male

DRUGS (2)
  1. NEOSTIGMINE METHYLSULFATE. [Suspect]
     Active Substance: NEOSTIGMINE METHYLSULFATE
     Indication: NEUROMUSCULAR BLOCKADE REVERSAL
     Dosage: UNK UNKNOWN, UNKNOWN
     Route: 065
     Dates: start: 20191021, end: 20191021
  2. ROBINUL [Suspect]
     Active Substance: GLYCOPYRROLATE
     Indication: NEUROMUSCULAR BLOCKADE REVERSAL
     Dosage: UNK UNKNOWN, UNKNOWN
     Route: 065
     Dates: start: 20191021, end: 20191021

REACTIONS (2)
  - Paradoxical drug reaction [Recovered/Resolved]
  - Paralysis [Recovered/Resolved]

NARRATIVE: CASE EVENT DATE: 20191021
